FAERS Safety Report 9219194 (Version 1)
Quarter: 2013Q2

REPORT INFORMATION
  Report Type: Spontaneous
  Country: US (occurrence: None)
  Receive Date: 20130404
  Receipt Date: 20130404
  Transmission Date: 20140414
  Serious: Yes (Other)
  Sender: FDA-Public Use
  Company Number: US-1197411

PATIENT
  Sex: 0

DRUGS (1)
  1. VIGAMOX [Suspect]
     Indication: ANTIBIOTIC PROPHYLAXIS
     Route: 047
     Dates: start: 2010, end: 2010

REACTIONS (2)
  - Off label use [None]
  - Endophthalmitis [None]
